FAERS Safety Report 13751981 (Version 1)
Quarter: 2017Q3

REPORT INFORMATION
  Report Type: Spontaneous
  Country: IN (occurrence: IN)
  Receive Date: 20170713
  Receipt Date: 20170713
  Transmission Date: 20171127
  Serious: Yes (Other)
  Sender: FDA-Public Use
  Company Number: IN-MYLANLABS-2017M1040659

PATIENT

DRUGS (8)
  1. ILOPERIDONE. [Suspect]
     Active Substance: ILOPERIDONE
     Indication: SCHIZOPHRENIA
     Dosage: 8 MG, QD
     Dates: start: 2017
  2. ILOPERIDONE. [Suspect]
     Active Substance: ILOPERIDONE
     Dosage: 8 MG, QOD
     Dates: start: 2017
  3. ARIPIPRAZOLE. [Suspect]
     Active Substance: ARIPIPRAZOLE
     Dosage: 20 MG, QD
     Dates: start: 2017
  4. CLOZAPINE. [Suspect]
     Active Substance: CLOZAPINE
     Dosage: 300 MG, QOD
     Dates: start: 2017
  5. CLOZAPINE. [Suspect]
     Active Substance: CLOZAPINE
     Indication: SCHIZOPHRENIA
     Dosage: 300 MG, QD
     Dates: start: 2017
  6. ARIPIPRAZOLE. [Suspect]
     Active Substance: ARIPIPRAZOLE
     Indication: SCHIZOPHRENIA
     Dosage: 30 MG, QD
     Dates: start: 2017
  7. ARIPIPRAZOLE. [Suspect]
     Active Substance: ARIPIPRAZOLE
     Dosage: 30 MG, QOD
     Dates: start: 2017
  8. ILOPERIDONE. [Suspect]
     Active Substance: ILOPERIDONE
     Dosage: 20 MG, QD
     Dates: start: 2017

REACTIONS (3)
  - Psychotic disorder [Recovered/Resolved]
  - Sedation [Unknown]
  - Constipation [Unknown]

NARRATIVE: CASE EVENT DATE: 2017
